FAERS Safety Report 7814363-8 (Version None)
Quarter: 2011Q4

REPORT INFORMATION
  Report Type: 
  Country: None (occurrence: None)
  Receive Date: 20111014
  Receipt Date: 20111003
  Transmission Date: 20120403
  Serious: Yes (Other)
  Sender: FDA-Public Use
  Company Number: PHHY2011BR88554

PATIENT
  Age: 53 Year
  Sex: Male

DRUGS (2)
  1. EXFORGE [Suspect]
     Dosage: 320/10 MG
  2. RASILEZ [Suspect]
     Dosage: 150 MG PER DAY

REACTIONS (2)
  - RENAL CELL CARCINOMA [None]
  - BLOOD CREATININE INCREASED [None]
